FAERS Safety Report 12329801 (Version 2)
Quarter: 2016Q2

REPORT INFORMATION
  Report Type: Spontaneous
  Country: FR (occurrence: FR)
  Receive Date: 20160503
  Receipt Date: 20160524
  Transmission Date: 20160815
  Serious: Yes (Hospitalization)
  Sender: FDA-Public Use
  Company Number: FR-ELI_LILLY_AND_COMPANY-FR201604005665

PATIENT
  Age: 62 Year
  Weight: 60 kg

DRUGS (9)
  1. VITAMIN B12 [Concomitant]
     Active Substance: CYANOCOBALAMIN
     Indication: VITAMIN SUPPLEMENTATION
     Dosage: 0.047 DF, CYCLICAL
     Route: 048
     Dates: start: 20150430
  2. LYRICA [Concomitant]
     Active Substance: PREGABALIN
     Dosage: 100 MG, EACH EVENING
     Route: 048
     Dates: start: 20151025, end: 20160304
  3. ALIMTA [Suspect]
     Active Substance: PEMETREXED DISODIUM
     Indication: LUNG ADENOCARCINOMA METASTATIC
     Dosage: 900 MG, CYCLICAL
     Route: 042
     Dates: start: 20150430, end: 20160308
  4. PREDNISONE. [Concomitant]
     Active Substance: PREDNISONE
     Indication: PROPHYLAXIS OF NAUSEA AND VOMITING
     Dosage: 0.047 DF, CYCLICAL
     Route: 048
     Dates: start: 20150430, end: 20160308
  5. ALIMTA [Suspect]
     Active Substance: PEMETREXED DISODIUM
     Dosage: 900 MG, CYCLICAL
     Route: 042
     Dates: start: 20150430, end: 20160308
  6. ALIMTA [Suspect]
     Active Substance: PEMETREXED DISODIUM
     Dosage: 900 MG, CYCLICAL
     Route: 042
     Dates: start: 20150430, end: 20160308
  7. LYRICA [Concomitant]
     Active Substance: PREGABALIN
     Indication: PARAESTHESIA
     Dosage: 50 MG, EACH EVENING
     Route: 048
     Dates: start: 20151020, end: 20151024
  8. OXYCONTIN [Suspect]
     Active Substance: OXYCODONE HYDROCHLORIDE
     Indication: PAIN
     Dosage: 10 MG, QD
     Route: 048
     Dates: start: 20160304, end: 20160322
  9. SPECIAFOLDINE [Concomitant]
     Active Substance: FOLIC ACID
     Indication: ANAEMIA PROPHYLAXIS
     Dosage: 0.4 MG, QD
     Route: 048
     Dates: start: 20150430, end: 20160325

REACTIONS (7)
  - Skin hyperpigmentation [Recovering/Resolving]
  - Oedema peripheral [Recovering/Resolving]
  - Blood albumin decreased [Unknown]
  - C-reactive protein increased [Unknown]
  - Erythema [Recovering/Resolving]
  - Neuropathy peripheral [Recovering/Resolving]
  - Haemoglobin decreased [Unknown]

NARRATIVE: CASE EVENT DATE: 20160304
